FAERS Safety Report 4483393-9 (Version None)
Quarter: 2004Q4

REPORT INFORMATION
  Report Type: 
  Country: None (occurrence: None)
  Receive Date: 20041020
  Receipt Date: 20041008
  Transmission Date: 20050328
  Serious: Yes (Hospitalization)
  Sender: FDA-Public Use
  Company Number: HQWYE656924JUN04

PATIENT
  Age: 36 Year
  Sex: Male

DRUGS (1)
  1. RHINADVIL (IBUPROFEN/PSEUDOEPHEDRINE, TABLET) [Suspect]
     Indication: NASOPHARYNGITIS
     Dosage: ^3 DOSE FORM PER DAT=Y^, ORAL
     Route: 048
     Dates: start: 20040613, end: 20040615

REACTIONS (3)
  - ACUTE GENERALISED EXANTHEMATOUS PUSTULOSIS [None]
  - RED BLOOD CELL SEDIMENTATION RATE INCREASED [None]
  - WHITE BLOOD CELL COUNT INCREASED [None]
